FAERS Safety Report 5745129-0 (Version None)
Quarter: 2008Q2

REPORT INFORMATION
  Report Type: 
  Country: None (occurrence: None)
  Receive Date: 20080521
  Receipt Date: 20080521
  Transmission Date: 20081010
  Serious: Yes (Other)
  Sender: FDA-Public Use
  Company Number: None

PATIENT
  Sex: Female
  Weight: 12.2 kg

DRUGS (2)
  1. HEPARIN [Suspect]
     Dosage: 2 UNIT/ML 3 ML/HOUR IV DRIP
     Route: 041
  2. THIOPENTAL SODIUM [Suspect]
     Dosage: 20 MG/ML 1.4 ML/HOUR IV DRIP
     Route: 041
     Dates: start: 20080430, end: 20080506

REACTIONS (2)
  - DEEP VEIN THROMBOSIS [None]
  - PHARMACEUTICAL PRODUCT COMPLAINT [None]
